FAERS Safety Report 8790862 (Version 1)
Quarter: 2012Q4

REPORT INFORMATION
  Report Type: Spontaneous
  Country: US (occurrence: None)
  Receive Date: 20120913
  Receipt Date: 20120913
  Transmission Date: 20130627
  Serious: Yes (Disabling, Other)
  Sender: FDA-Public Use
  Company Number: None

PATIENT
  Age: 41 Year
  Sex: Female
  Weight: 68.04 kg

DRUGS (1)
  1. PHENTERMINE [Suspect]

REACTIONS (6)
  - Palpitations [None]
  - Anxiety [None]
  - Ventricular extrasystoles [None]
  - Ejection fraction decreased [None]
  - Arrhythmia [None]
  - Cardiomyopathy [None]
